FAERS Safety Report 9619273 (Version 1)
Quarter: 2013Q4

REPORT INFORMATION
  Report Type: Spontaneous
  Country: US (occurrence: US)
  Receive Date: 20131014
  Receipt Date: 20131014
  Transmission Date: 20140711
  Serious: No
  Sender: FDA-Public Use
  Company Number: US-BAYER-2013-113916

PATIENT
  Age: 71 Year
  Sex: Male

DRUGS (3)
  1. XOFIGO [Suspect]
     Indication: PROSTATE CANCER METASTATIC
     Dosage: 121.6 ?CI, UNK
     Route: 042
     Dates: start: 20130801, end: 20130801
  2. XOFIGO [Suspect]
     Indication: METASTASES TO BONE
     Dosage: 121.6 ?CI, UNK
     Route: 042
     Dates: start: 20130830, end: 20130830
  3. XOFIGO [Suspect]
     Indication: PROSTATE CANCER METASTATIC
     Dosage: 121.6 ?CI, UNK
     Route: 042
     Dates: start: 20130927, end: 20130927

REACTIONS (2)
  - Prostatic specific antigen increased [Not Recovered/Not Resolved]
  - Expired drug administered [None]
